FAERS Safety Report 18945342 (Version 1)
Quarter: 2021Q1

REPORT INFORMATION
  Report Type: Other
  Country: GB (occurrence: GB)
  Receive Date: 20210226
  Receipt Date: 20210226
  Transmission Date: 20210420
  Serious: Yes (Other)
  Sender: FDA-Public Use
  Company Number: GB-ROCHE-2176577

PATIENT
  Age: 49 Year
  Sex: Female

DRUGS (11)
  1. TRASTUZUMAB. [Suspect]
     Active Substance: TRASTUZUMAB
     Dosage: LOADING 8 MG/KG AND THEN MAINTANANCE DOSE 6 MG/KG IN 3 WEEKS
     Route: 042
     Dates: start: 20161208
  2. PERTUZUMAB. [Suspect]
     Active Substance: PERTUZUMAB
     Dosage: 840 MG LOADING DOSE ONCE AND MAINTENANCE DOSE OF 420 MG IN 3 WEEKS
     Route: 042
     Dates: start: 20161208
  3. PERTUZUMAB. [Suspect]
     Active Substance: PERTUZUMAB
     Dosage: 840 MG LOADING DOSE ONCE AND MAINTENANCE DOSE OF 420 MG IN 3 WEEKS?DRUG DISCONTINUED FOR REASSESSMEN
     Route: 042
     Dates: start: 20150925, end: 20160916
  4. TRASTUZUMAB. [Suspect]
     Active Substance: TRASTUZUMAB
     Indication: BREAST CANCER
     Dosage: LOADING DOSE OF 8 MG/KG AND THEN 6 MG/KG REPEATED AT 3 WEEKLY INTERVALS
     Route: 042
     Dates: start: 20150904, end: 20150904
  5. PERTUZUMAB. [Suspect]
     Active Substance: PERTUZUMAB
     Dosage: 840 MG LOADING DOSE ONCE AND MAINTENANCE DOSE OF 420 MG IN 3 WEEKS
     Route: 042
     Dates: start: 20161117, end: 20161117
  6. TAMOXIFEN [Suspect]
     Active Substance: TAMOXIFEN
     Indication: BREAST CANCER
     Route: 048
     Dates: start: 20160420
  7. PERTUZUMAB. [Suspect]
     Active Substance: PERTUZUMAB
     Indication: BREAST CANCER
     Dosage: 840 MG LOADING DOSE ONCE AND MAINTENANCE DOSE OF 420 MG IN 3 WEEKS
     Route: 042
     Dates: start: 20150904, end: 20150904
  8. DOCETAXEL. [Suspect]
     Active Substance: DOCETAXEL
     Indication: BREAST CANCER
     Route: 042
     Dates: start: 20150904, end: 20151016
  9. TRASTUZUMAB. [Suspect]
     Active Substance: TRASTUZUMAB
     Dosage: LOADING DOSE OF 8 MG/KG AND THEN 6 MG/KG REPEATED AT 3 WEEKLY INTERVALS?DRUG DISCONTINUED FOR REASSE
     Route: 042
     Dates: start: 20150925, end: 20160916
  10. DOCETAXEL. [Suspect]
     Active Substance: DOCETAXEL
     Dosage: DOSE MODIFIED DUE TO AE FROM 130 TO 100?PLANNED CYCLES COMPLETED HENCE DISCONTINUED
     Route: 042
     Dates: start: 20151113, end: 20160104
  11. TRASTUZUMAB. [Suspect]
     Active Substance: TRASTUZUMAB
     Dosage: LOADING 8 MG/KG AND THEN MAINTANANCE DOSE 6 MG/KG IN 3 WEEKS
     Route: 042
     Dates: start: 20161117, end: 20161117

REACTIONS (1)
  - Pelvic infection [Recovered/Resolved]

NARRATIVE: CASE EVENT DATE: 201612
